FAERS Safety Report 24865005 (Version 1)
Quarter: 2025Q1

REPORT INFORMATION
  Report Type: Spontaneous
  Country: US (occurrence: US)
  Receive Date: 20250121
  Receipt Date: 20250121
  Transmission Date: 20250409
  Serious: Yes (Other)
  Sender: STRIDES
  Company Number: US-STRIDES ARCOLAB LIMITED-2024SP010841

PATIENT
  Age: 79 Year
  Sex: Female

DRUGS (3)
  1. METHOTREXATE [Suspect]
     Active Substance: METHOTREXATE
     Indication: Psoriasis
     Route: 065
  2. CLOBETASOL [Suspect]
     Active Substance: CLOBETASOL
     Indication: Psoriasis
     Route: 065
  3. TILDRAKIZUMAB [Suspect]
     Active Substance: TILDRAKIZUMAB
     Indication: Psoriasis
     Route: 065

REACTIONS (2)
  - Renal injury [Unknown]
  - Therapy non-responder [Unknown]
